FAERS Safety Report 6932264-4 (Version None)
Quarter: 2010Q3

REPORT INFORMATION
  Report Type: 
  Country: None (occurrence: None)
  Receive Date: 20100819
  Receipt Date: 20100809
  Transmission Date: 20110219
  Serious: Yes (Hospitalization)
  Sender: FDA-Public Use
  Company Number: NL-ROCHE-720097

PATIENT
  Sex: Female

DRUGS (15)
  1. CAPECITABINE [Suspect]
     Indication: BREAST CANCER
     Dosage: DATE OF LAST DOSE PRIOR TO SAE: 28 APRIL 2010
     Route: 048
     Dates: start: 20100211
  2. BEVACIZUMAB [Suspect]
     Indication: BREAST CANCER
     Dosage: DATE OF LAST DOSE PRIOR TO SAE: 15 APRIL 2010, DISCONTINUED TEMPORARILY
     Route: 042
     Dates: start: 20100211
  3. PACLITAXEL [Suspect]
     Indication: BREAST CANCER
     Dosage: DATE OF LAST DOSE PRIOR TO SAE: 22 APRIL 2010
     Route: 042
     Dates: start: 20100211
  4. ZOLADEX [Concomitant]
     Dates: start: 20070914
  5. FRAXIPARINE [Concomitant]
     Dates: start: 20100329, end: 20100423
  6. FRAXIPARINE [Concomitant]
     Dosage: DRUG: FRAXODI
     Dates: start: 20100427, end: 20100507
  7. OXYCODONE HCL [Concomitant]
     Dosage: REQUENCY: IF NEEDED
     Dates: start: 20100204, end: 20100402
  8. PRIMPERAN TAB [Concomitant]
     Dates: start: 20100205
  9. MG(0H)2 [Concomitant]
     Dates: start: 20100218
  10. DEXAMETHASONE [Concomitant]
     Dates: start: 20100222
  11. MORPHINE [Concomitant]
     Dosage: FREQUENCY: IF NEEDED
     Dates: start: 20100402
  12. ACETAMINOPHEN [Concomitant]
  13. TRAMADOL [Concomitant]
     Dosage: IF NEEDED
  14. CIPROFLOXACIN HCL [Concomitant]
     Dates: start: 20100503
  15. MARCUMAR [Concomitant]
     Dates: start: 20100429

REACTIONS (2)
  - MUCOSAL INFLAMMATION [None]
  - THROMBOSIS [None]
